FAERS Safety Report 4700688-1 (Version None)
Quarter: 2005Q2

REPORT INFORMATION
  Report Type: 
  Country: None (occurrence: None)
  Receive Date: 20050627
  Receipt Date: 20050523
  Transmission Date: 20051028
  Serious: Yes (Death, Hospitalization)
  Sender: FDA-Public Use
  Company Number: US-MERCK-0505USA02715

PATIENT
  Age: 48 Year
  Sex: Female

DRUGS (29)
  1. MORPHINE [Concomitant]
     Route: 065
     Dates: start: 20000501, end: 20001001
  2. TEMAZEPAM [Concomitant]
     Route: 065
     Dates: start: 20030121, end: 20030126
  3. VIOXX [Suspect]
     Indication: PAIN
     Route: 048
     Dates: start: 20010111, end: 20030116
  4. VIOXX [Suspect]
     Route: 048
  5. PREMARIN [Concomitant]
     Route: 065
  6. DURAGESIC-100 [Concomitant]
     Route: 065
     Dates: start: 20000101, end: 20000401
  7. METHADONE HYDROCHLORIDE [Concomitant]
     Route: 065
     Dates: start: 20000101, end: 20000401
  8. FUROSEMIDE [Concomitant]
     Route: 065
  9. POTASSIUM (UNSPECIFIED) [Concomitant]
     Route: 065
  10. ALTACE [Concomitant]
     Route: 065
     Dates: start: 20000213, end: 20030121
  11. METOPROLOL [Concomitant]
     Route: 065
     Dates: start: 20000214, end: 20030116
  12. NORTRIPTYLINE [Concomitant]
     Route: 065
  13. VANCERIL [Concomitant]
     Route: 065
  14. SULFATRIM [Concomitant]
     Route: 065
  15. DOVONEX [Concomitant]
     Route: 065
  16. CEPHALEXIN [Concomitant]
     Route: 065
  17. SERZONE [Concomitant]
     Route: 065
     Dates: start: 20011115, end: 20020305
  18. CLOBETASOL PROPIONATE [Concomitant]
     Route: 065
  19. ZAROXOLYN [Concomitant]
     Route: 065
  20. CIPRO [Concomitant]
     Route: 065
  21. XENICAL [Concomitant]
     Route: 065
  22. ZITHROMAX [Concomitant]
     Route: 065
  23. TRIMOX [Concomitant]
     Route: 065
  24. LIDODERM [Concomitant]
     Route: 065
     Dates: start: 20010901, end: 20030101
  25. TRIAMCINOLONE [Concomitant]
     Route: 065
  26. EFFEXOR XR [Concomitant]
     Route: 065
     Dates: start: 20020328, end: 20030121
  27. AMBIEN [Concomitant]
     Route: 065
  28. LIPITOR [Concomitant]
     Route: 065
     Dates: start: 20020814, end: 20030116
  29. NEURONTIN [Concomitant]
     Route: 065
     Dates: start: 20021001, end: 20030101

REACTIONS (9)
  - ASTHMA [None]
  - BACTERIAL INFECTION [None]
  - CARDIAC FAILURE CONGESTIVE [None]
  - CEREBROVASCULAR ACCIDENT [None]
  - CORONARY ARTERY DISEASE [None]
  - DIABETES MELLITUS [None]
  - EAR INFECTION [None]
  - LOWER RESPIRATORY TRACT INFECTION [None]
  - PSORIASIS [None]
